FAERS Safety Report 5630011-X (Version None)
Quarter: 2008Q1

REPORT INFORMATION
  Report Type: 
  Country: None (occurrence: None)
  Receive Date: 20080218
  Receipt Date: 20080208
  Transmission Date: 20080703
  Serious: Yes (Other)
  Sender: FDA-Public Use
  Company Number: PHBS2007GB19622

PATIENT
  Sex: Male

DRUGS (2)
  1. STALEVO 100 [Suspect]
     Indication: PARKINSON'S DISEASE
     Route: 048
  2. MADOPAR CR [Concomitant]
     Route: 065

REACTIONS (2)
  - BILIARY TRACT DISORDER [None]
  - DIARRHOEA [None]
